FAERS Safety Report 19492823 (Version 1)
Quarter: 2021Q3

REPORT INFORMATION
  Report Type: Spontaneous
  Country: US (occurrence: US)
  Receive Date: 20210705
  Receipt Date: 20210705
  Transmission Date: 20211014
  Serious: Yes (Death)
  Sender: FDA-Public Use
  Company Number: US-SA-2021SA167343

PATIENT
  Age: 67 Year
  Sex: Male

DRUGS (2)
  1. GALAFOLD [Concomitant]
     Active Substance: MIGALASTAT HYDROCHLORIDE
     Indication: FABRY^S DISEASE
     Route: 048
  2. FABRAZYME [Suspect]
     Active Substance: AGALSIDASE BETA
     Indication: FABRY^S DISEASE
     Dosage: 70 MG QOW
     Route: 042
     Dates: start: 201904

REACTIONS (1)
  - COVID-19 [Fatal]
